FAERS Safety Report 9455429 (Version 1)
Quarter: 2013Q3

REPORT INFORMATION
  Report Type: Report from Study
  Country: NL (occurrence: NL)
  Receive Date: 20130813
  Receipt Date: 20130813
  Transmission Date: 20140515
  Serious: Yes (Death)
  Sender: FDA-Public Use
  Company Number: PHHY2013NL086561

PATIENT
  Age: 90 Year
  Sex: Male

DRUGS (4)
  1. ZOMETA [Suspect]
     Indication: PROSTATE CANCER METASTATIC
     Dosage: 4 MG/100 ML ONCE EVERY FOUR WEEK
     Route: 041
  2. ZOMETA [Suspect]
     Dosage: 4 MG/100 ML ONCE EVERY FOUR WEEK
     Route: 041
     Dates: start: 20091203
  3. ZOMETA [Suspect]
     Dosage: 4 MG/100 ML ONCE EVERY FOUR WEEK
     Route: 041
     Dates: start: 20130715
  4. ZOMETA [Suspect]
     Dosage: 4 MG/100 ML ONCE EVERY FOUR WEEK
     Route: 041
     Dates: start: 20130806

REACTIONS (1)
  - Death [Fatal]
